FAERS Safety Report 23457232 (Version 3)
Quarter: 2024Q1

REPORT INFORMATION
  Report Type: Spontaneous
  Country: ES (occurrence: ES)
  Receive Date: 20240130
  Receipt Date: 20240206
  Transmission Date: 20240410
  Serious: Yes (Death, Other)
  Sender: FDA-Public Use
  Company Number: ES-SANDOZ-SDZ2024ES005433

PATIENT

DRUGS (11)
  1. LENALIDOMIDE [Suspect]
     Active Substance: LENALIDOMIDE
     Indication: Diffuse large B-cell lymphoma recurrent
     Dosage: 15 MILLIGRAM, (COHORT B)
     Route: 048
  2. LENALIDOMIDE [Suspect]
     Active Substance: LENALIDOMIDE
     Indication: Diffuse large B-cell lymphoma refractory
     Dosage: 20 MILLIGRAM, (COHORT B), 1.8 MG/KG (ALL COHORTS) (ADMINISTERED ON DAY 1-21 OF EACH
     Route: 048
  3. LENALIDOMIDE [Suspect]
     Active Substance: LENALIDOMIDE
     Dosage: 10 MILLIGRAM, (COHORT B), 10 MG/DAY ON DAYS 1-21 OF EACH 28-DAY CYCLE FOR A MAXIMUM
     Route: 048
  4. LENALIDOMIDE [Suspect]
     Active Substance: LENALIDOMIDE
     Dosage: 10 MILLIGRAM, (COHORT A)
     Route: 048
  5. LENALIDOMIDE [Suspect]
     Active Substance: LENALIDOMIDE
     Indication: Diffuse large B-cell lymphoma recurrent
     Dosage: 1.8 MILLIGRAM/KILOGRAM, (ALL COHORTS) (ADMINISTERED ON DAY 1-21 OF EACH 28-DAY
     Route: 042
  6. LENALIDOMIDE [Suspect]
     Active Substance: LENALIDOMIDE
     Indication: Diffuse large B-cell lymphoma refractory
  7. POLATUZUMAB VEDOTIN [Suspect]
     Active Substance: POLATUZUMAB VEDOTIN
     Indication: Diffuse large B-cell lymphoma recurrent
     Dosage: 1.8 MILLIGRAM/KILOGRAM, CYCLICAL SIX 28-DAY CYCLES OF POLA+R+LEN AT THE RECOMMENDED PHASE 2
     Route: 042
  8. POLATUZUMAB VEDOTIN [Suspect]
     Active Substance: POLATUZUMAB VEDOTIN
     Indication: Diffuse large B-cell lymphoma refractory
     Dosage: 1.4 MILLIGRAM/KILOGRAM
     Route: 042
  9. POLATUZUMAB VEDOTIN [Suspect]
     Active Substance: POLATUZUMAB VEDOTIN
     Dosage: 1.8 MG/KG (ALL COHORTS) (ADMINISTERED ON DAY 1-21 OF EACH 28-DAY CYCLE/SIX 28-DAY CYCLES)
     Route: 042
  10. RITUXIMAB [Suspect]
     Active Substance: RITUXIMAB
     Indication: Diffuse large B-cell lymphoma recurrent
     Dosage: 375 MILLIGRAM/SQ. METER, CYCLIC (SIX 28-DAY CYCLES OF POLA+R+LEN AT THE RECOMMENDED PHASE
     Route: 042
  11. RITUXIMAB [Suspect]
     Active Substance: RITUXIMAB
     Indication: Diffuse large B-cell lymphoma refractory
     Dosage: 375 MG/M2 (SIX 28-DAY CYCLES OF INDUCTION TREATMENT)
     Route: 042

REACTIONS (2)
  - Neutropenic sepsis [Fatal]
  - Product use issue [Unknown]
